FAERS Safety Report 24586936 (Version 1)
Quarter: 2024Q4

REPORT INFORMATION
  Report Type: Spontaneous
  Country: US (occurrence: US)
  Receive Date: 20241107
  Receipt Date: 20241107
  Transmission Date: 20250114
  Serious: Yes (Other)
  Sender: SANDOZ
  Company Number: US-SANDOZ-SDZ2024US092359

PATIENT
  Sex: Female

DRUGS (3)
  1. PROLIA [Suspect]
     Active Substance: DENOSUMAB
     Indication: Osteoporosis
     Route: 065
  2. RECLAST [Suspect]
     Active Substance: ZOLEDRONIC ACID
     Indication: COVID-19 immunisation
     Route: 065
  3. RECLAST [Suspect]
     Active Substance: ZOLEDRONIC ACID
     Indication: Osteoporosis

REACTIONS (19)
  - Orthodontic procedure [Unknown]
  - Eyelid ptosis [Not Recovered/Not Resolved]
  - Hypogeusia [Unknown]
  - Medical diet [Unknown]
  - Cognitive disorder [Unknown]
  - Memory impairment [Unknown]
  - Post vaccination syndrome [Unknown]
  - Inflammation [Unknown]
  - Neuralgia [Unknown]
  - Muscular weakness [Unknown]
  - Grip strength decreased [Unknown]
  - Arthritis [Unknown]
  - Dry mouth [Unknown]
  - Hypoaesthesia [Unknown]
  - Vision blurred [Unknown]
  - Hypoaesthesia [Unknown]
  - Confusional state [Unknown]
  - Paraesthesia [Unknown]
  - Hyperglycaemia [Unknown]

NARRATIVE: CASE EVENT DATE: 20210201
